FAERS Safety Report 8030438-5 (Version None)
Quarter: 2011Q4

REPORT INFORMATION
  Report Type: 
  Country: None (occurrence: None)
  Receive Date: 20111130
  Receipt Date: 20110713
  Transmission Date: 20120403
  Serious: Yes (Hospitalization, Other)
  Sender: FDA-Public Use
  Company Number: US200905004506

PATIENT
  Age: 53 Year
  Sex: Female
  Weight: 109.8 kg

DRUGS (16)
  1. PREVACID [Concomitant]
  2. BYETTA [Suspect]
     Indication: TYPE 2 DIABETES MELLITUS
     Dosage: 5 UG, BID
     Dates: start: 20061001, end: 20070301
  3. NICARDIPINE HCL [Concomitant]
  4. EXENATIDE UNKNOWN STRENGTH PEN, DISPOSABLE DEVICE (EXENATIDE PEN (UNKN [Concomitant]
  5. AVANDIA [Concomitant]
  6. PREMARIN [Concomitant]
  7. TYLENOL /00020001/ (PARACETAMOL) [Concomitant]
  8. BENAZEPRIL HYDROCHLORIDE [Concomitant]
  9. METFORMIN HCL [Concomitant]
  10. AMBIEN [Concomitant]
  11. LASIX [Concomitant]
  12. NITROFURANTOIN [Concomitant]
  13. ACCUPRIL [Concomitant]
  14. TOPROL-XL [Concomitant]
  15. HYDROCHLROTHIAZIDE (HYDROCHLOROTHIAZIDE) [Concomitant]
  16. PAROXETINE HCL (PAROXETINE HYDROCHLORIDE) [Concomitant]

REACTIONS (2)
  - PANCREATITIS ACUTE [None]
  - WEIGHT DECREASED [None]
